FAERS Safety Report 25633002 (Version 4)
Quarter: 2025Q3

REPORT INFORMATION
  Report Type: Spontaneous
  Country: US (occurrence: US)
  Receive Date: 20250801
  Receipt Date: 20250930
  Transmission Date: 20251020
  Serious: No
  Sender: PFIZER
  Company Number: US-PFIZER INC-202500122457

PATIENT
  Age: 74 Year
  Sex: Female

DRUGS (2)
  1. IBRANCE [Suspect]
     Active Substance: PALBOCICLIB
     Indication: Breast cancer female
     Route: 048
  2. IBRANCE [Suspect]
     Active Substance: PALBOCICLIB
     Route: 048

REACTIONS (2)
  - Neutrophil count decreased [Unknown]
  - Blood test abnormal [Unknown]

NARRATIVE: CASE EVENT DATE: 20250101
